FAERS Safety Report 24349382 (Version 4)
Quarter: 2024Q4

REPORT INFORMATION
  Report Type: Spontaneous
  Country: FR (occurrence: FR)
  Receive Date: 20240923
  Receipt Date: 20241004
  Transmission Date: 20250115
  Serious: Yes (Life-Threatening, Other)
  Sender: ROCHE
  Company Number: None

PATIENT
  Age: 10 Year
  Sex: Female
  Weight: 28 kg

DRUGS (27)
  1. VALGANCICLOVIR HYDROCHLORIDE [Suspect]
     Active Substance: VALGANCICLOVIR HYDROCHLORIDE
     Indication: Antiviral prophylaxis
     Dosage: 50 MG/ML, POWDER FOR ORAL SOLUTION?OWDER FOR SOLUTION FOR INFUSION
     Route: 042
  2. BACTRIM [Suspect]
     Active Substance: SULFAMETHOXAZOLE\TRIMETHOPRIM
     Indication: Antifungal prophylaxis
     Dosage: UNK (40 MG/ML + 8 MG/ML, SUSPENSION BUVABLE
     Route: 048
     Dates: start: 20240611
  3. CELLCEPT [Suspect]
     Active Substance: MYCOPHENOLATE MOFETIL
     Indication: Prophylaxis against transplant rejection
     Route: 048
     Dates: start: 20240607
  4. MIDAZOLAM [Suspect]
     Active Substance: MIDAZOLAM
     Indication: Sedation
     Route: 042
     Dates: start: 20240607
  5. FUNGIZONE [Suspect]
     Active Substance: AMPHOTERICIN B
     Indication: Antifungal prophylaxis
     Dosage: 10 % (DRINKABLE SUSPENSION)
     Route: 048
     Dates: start: 20240608
  6. AMIKACIN [Suspect]
     Active Substance: AMIKACIN
     Indication: Septic shock
     Route: 065
     Dates: start: 20240612, end: 20240612
  7. PANTOPRAZOLE SODIUM [Suspect]
     Active Substance: PANTOPRAZOLE SODIUM
     Indication: Prophylaxis against gastrointestinal ulcer
     Dosage: OWDER FOR SOLUTION FOR INJECTIO
     Route: 042
  8. FUROSEMIDE [Suspect]
     Active Substance: FUROSEMIDE
     Indication: Fluid retention
     Route: 042
     Dates: start: 20240612
  9. TACROLIMUS [Suspect]
     Active Substance: TACROLIMUS
     Indication: Prophylaxis against transplant rejection
     Route: 048
     Dates: start: 20240607
  10. GANCICLOVIR SODIUM [Suspect]
     Active Substance: GANCICLOVIR SODIUM
     Indication: Antiviral prophylaxis
     Route: 042
     Dates: start: 20240608, end: 20240617
  11. CEFAZOLIN SODIUM [Suspect]
     Active Substance: CEFAZOLIN SODIUM
     Indication: Antibiotic prophylaxis
     Route: 042
     Dates: start: 20240607, end: 20240613
  12. NOREPINEPHRINE [Suspect]
     Active Substance: NOREPINEPHRINE\NOREPINEPHRINE BITARTRATE
     Indication: Vasopressive therapy
     Route: 042
     Dates: start: 20240607, end: 20240612
  13. NOREPINEPHRINE [Suspect]
     Active Substance: NOREPINEPHRINE\NOREPINEPHRINE BITARTRATE
     Indication: Vasopressive therapy
     Route: 042
     Dates: start: 20240628, end: 20240707
  14. ACETAMINOPHEN [Suspect]
     Active Substance: ACETAMINOPHEN
     Indication: Analgesic therapy
     Route: 048
  15. METHYLPREDNISOLONE [Suspect]
     Active Substance: METHYLPREDNISOLONE
     Indication: Prophylaxis against transplant rejection
     Route: 042
     Dates: start: 20240607, end: 20240617
  16. NYSTATIN [Suspect]
     Active Substance: NYSTATIN
     Indication: Antifungal prophylaxis
     Dosage: NK (1.000.000 U.I)
     Route: 048
     Dates: end: 20240710
  17. CEFTAZIDIME [Suspect]
     Active Substance: CEFTAZIDIME
     Indication: Pseudomonas infection
     Route: 042
     Dates: end: 20240621
  18. AMBISOME [Suspect]
     Active Substance: AMPHOTERICIN B
     Indication: Antifungal prophylaxis
     Route: 055
     Dates: start: 20240608
  19. DEXMEDETOMIDINE HYDROCHLORIDE [Suspect]
     Active Substance: DEXMEDETOMIDINE HYDROCHLORIDE
     Indication: Sedation
     Dosage: UNK 100 UG/ML (SOLUTION FOR DILUTION FOR INFUSION
     Route: 042
     Dates: start: 20240607
  20. EPINEPHRINE [Suspect]
     Active Substance: EPINEPHRINE
     Indication: Vasopressive therapy
     Route: 042
     Dates: start: 20240607, end: 20240621
  21. PIPERACILLIN SODIUM\TAZOBACTAM SODIUM [Suspect]
     Active Substance: PIPERACILLIN SODIUM\TAZOBACTAM SODIUM
     Indication: Pseudomonas infection
     Route: 042
     Dates: end: 20240717
  22. PIPERACILLIN SODIUM\TAZOBACTAM SODIUM [Suspect]
     Active Substance: PIPERACILLIN SODIUM\TAZOBACTAM SODIUM
     Dosage: POWDER FOR SOLUTION FOR INFUSION?4 G/0.5 G
     Route: 042
     Dates: start: 20240612, end: 20240612
  23. SUFENTANIL [Suspect]
     Active Substance: SUFENTANIL
     Indication: Analgesic therapy
     Route: 042
     Dates: end: 20240706
  24. SUFENTANIL [Suspect]
     Active Substance: SUFENTANIL
     Indication: Analgesic therapy
     Route: 042
     Dates: start: 20240607, end: 20240620
  25. NICARDIPINE [Suspect]
     Active Substance: NICARDIPINE
     Indication: Hypertension
     Dosage: STRENGTH: 10 MG/ML
     Route: 042
     Dates: start: 20240609, end: 20240616
  26. HEPARIN SODIUM [Suspect]
     Active Substance: HEPARIN SODIUM
     Indication: Thrombosis prophylaxis
     Dosage: UNK (5000 UI/0,2 ML, SOLUTION FOR SUBCUTANEOUS INJECTION)
     Route: 058
     Dates: end: 20240619
  27. EPINEPHRINE HYDROCHLORIDE [Suspect]
     Active Substance: EPINEPHRINE HYDROCHLORIDE
     Indication: Vasopressive therapy
     Route: 042
     Dates: start: 20240607, end: 20240621

REACTIONS (4)
  - Myocardial calcification [Recovering/Resolving]
  - Off label use [Unknown]
  - Septic shock [Unknown]
  - Off label use [Unknown]

NARRATIVE: CASE EVENT DATE: 20240612
